FAERS Safety Report 25533800 (Version 1)
Quarter: 2025Q3

REPORT INFORMATION
  Report Type: Spontaneous
  Country: JP (occurrence: JP)
  Receive Date: 20250709
  Receipt Date: 20250709
  Transmission Date: 20251020
  Serious: Yes (Death)
  Sender: NOVARTIS
  Company Number: JP-002147023-NVSJ2023JP011697

PATIENT
  Age: 40 Year
  Sex: Male

DRUGS (1)
  1. LUTATHERA [Suspect]
     Active Substance: LUTETIUM OXODOTREOTIDE LU-177
     Indication: Pancreatic neuroendocrine tumour
     Route: 042

REACTIONS (2)
  - Pancreatic neuroendocrine tumour [Fatal]
  - Malignant neoplasm progression [Fatal]
